FAERS Safety Report 10077969 (Version 2)
Quarter: 2014Q2

REPORT INFORMATION
  Report Type: Report from Study
  Country: US (occurrence: US)
  Receive Date: 20140415
  Receipt Date: 20140509
  Transmission Date: 20141212
  Serious: Yes (Other)
  Sender: FDA-Public Use
  Company Number: US-ROCHE-1381400

PATIENT
  Sex: Female

DRUGS (16)
  1. LUCENTIS [Suspect]
     Indication: DIABETIC RETINOPATHY
     Dosage: LEFT OR RIGHT EYE MONTHLY
     Route: 050
     Dates: start: 2013, end: 201402
  2. DEXAMETHASONE [Concomitant]
     Indication: GLAUCOMA
     Dosage: LEFT OR RIGHT EYE
     Route: 050
     Dates: start: 2013, end: 201402
  3. ADDERALL XR [Concomitant]
     Indication: ATTENTION DEFICIT/HYPERACTIVITY DISORDER
     Route: 048
  4. CARBAMAZEPINE [Concomitant]
     Indication: ANGER
     Route: 048
  5. CHANTIX [Concomitant]
  6. LANTUS [Concomitant]
     Indication: DIABETES MELLITUS
     Dosage: IN THE MORNING
     Route: 065
  7. LANTUS [Concomitant]
     Dosage: 55 UNITS AT NIGHT
     Route: 065
  8. LEVOTHYROXINE [Concomitant]
     Indication: THYROID DISORDER
     Route: 048
  9. LOSARTAN [Concomitant]
     Indication: HYPERTENSION
     Route: 048
  10. NOVOLOG [Concomitant]
     Dosage: SLIDING SCALE 3X A DAY DEPENDING ON SUGAR LEVEL
     Route: 065
  11. OMEPRAZOLE [Concomitant]
     Indication: GASTROOESOPHAGEAL REFLUX DISEASE
     Route: 048
  12. OMEPRAZOLE [Concomitant]
     Indication: IMPAIRED GASTRIC EMPTYING
  13. PRAVASTATIN [Concomitant]
     Dosage: AT NIGHT
     Route: 048
  14. COQ-10 [Concomitant]
  15. OMEGA 3 [Concomitant]
     Route: 065
  16. VITAMIN B12 [Concomitant]

REACTIONS (7)
  - Haemorrhage [Unknown]
  - Cerebrovascular accident [Unknown]
  - Eye disorder [Unknown]
  - Vitreous floaters [Unknown]
  - Anxiety [Unknown]
  - Hearing impaired [Unknown]
  - Fear [Unknown]
